FAERS Safety Report 6004215-0 (Version None)
Quarter: 2008Q4

REPORT INFORMATION
  Report Type: 
  Country: None (occurrence: None)
  Receive Date: 20081216
  Receipt Date: 20081204
  Transmission Date: 20090506
  Serious: Yes (Hospitalization, Other)
  Sender: FDA-Public Use
  Company Number: BR-BIOGENIDEC-2008BI023084

PATIENT
  Age: 30 Year
  Sex: Female

DRUGS (3)
  1. AVONEX [Suspect]
     Indication: MULTIPLE SCLEROSIS
     Route: 030
     Dates: start: 20060101
  2. DIAZEPAM [Concomitant]
     Indication: SEDATION
  3. TOPIRAMATE [Concomitant]
     Indication: DRUG USE FOR UNKNOWN INDICATION

REACTIONS (6)
  - BENIGN INTRACRANIAL HYPERTENSION [None]
  - CYST [None]
  - MULTIPLE SCLEROSIS RELAPSE [None]
  - SENSORY LOSS [None]
  - SERUM SEROTONIN DECREASED [None]
  - SPINAL CORD DRAINAGE [None]
